FAERS Safety Report 7776452-6 (Version None)
Quarter: 2011Q3

REPORT INFORMATION
  Report Type: 
  Country: None (occurrence: None)
  Receive Date: 20110926
  Receipt Date: 20110920
  Transmission Date: 20111222
  Serious: Yes (Death, Hospitalization, Other)
  Sender: FDA-Public Use
  Company Number: CH-JNJFOC-20110905167

PATIENT
  Age: 91 Year
  Sex: Female

DRUGS (8)
  1. HALDOL [Suspect]
     Indication: PRODUCT USED FOR UNKNOWN INDICATION
     Route: 065
     Dates: start: 20110602, end: 20110606
  2. TORSEMIDE [Concomitant]
     Route: 065
     Dates: end: 20110506
  3. TRAZODONE HCL [Suspect]
     Indication: PRODUCT USED FOR UNKNOWN INDICATION
     Route: 065
  4. ASPIRIN [Concomitant]
     Route: 065
  5. LAXOBERON [Concomitant]
     Route: 065
  6. FLAGYL [Concomitant]
     Indication: PSEUDOMEMBRANOUS COLITIS
     Route: 065
     Dates: start: 20110527
  7. TRILEPTAL [Concomitant]
     Route: 065
  8. SEROQUEL [Suspect]
     Indication: PRODUCT USED FOR UNKNOWN INDICATION
     Route: 065

REACTIONS (7)
  - GENERAL PHYSICAL HEALTH DETERIORATION [None]
  - ELECTROCARDIOGRAM QT PROLONGED [None]
  - ELECTROCARDIOGRAM T WAVE INVERSION [None]
  - HOSPITALISATION [None]
  - HYPOKALAEMIA [None]
  - HYPOXIA [None]
  - METABOLIC ALKALOSIS [None]
